FAERS Safety Report 9416410 (Version 4)
Quarter: 2013Q3

REPORT INFORMATION
  Report Type: Spontaneous
  Country: US (occurrence: US)
  Receive Date: 20130724
  Receipt Date: 20130918
  Transmission Date: 20140515
  Serious: Yes (Other)
  Sender: FDA-Public Use
  Company Number: US-PFIZER INC-2013214818

PATIENT
  Age: 62 Year
  Sex: Male
  Weight: 107 kg

DRUGS (4)
  1. LYRICA [Suspect]
     Dosage: 200 MG, 3X/DAY
     Route: 048
     Dates: start: 201207
  2. GABAPENTIN [Concomitant]
     Indication: HERPES ZOSTER
     Dosage: UNK
  3. PREDNISONE [Concomitant]
     Indication: HERPES ZOSTER
     Dosage: UNK
  4. LISINOPRIL [Concomitant]
     Indication: HYPERTENSION
     Dosage: UNK

REACTIONS (7)
  - Type 2 diabetes mellitus [Unknown]
  - Herpes zoster [Unknown]
  - Chest discomfort [Unknown]
  - Neuralgia [Unknown]
  - Malaise [Unknown]
  - Body height decreased [Unknown]
  - Therapeutic response unexpected [Unknown]
